FAERS Safety Report 7524754-0 (Version None)
Quarter: 2011Q2

REPORT INFORMATION
  Report Type: 
  Country: None (occurrence: None)
  Receive Date: 20110606
  Receipt Date: 20110523
  Transmission Date: 20111010
  Serious: Yes (Other)
  Sender: FDA-Public Use
  Company Number: GB-BAYER-2011-045875

PATIENT
  Age: 65 Year
  Sex: Male

DRUGS (2)
  1. SORAFENIB (RAF KINASE INHIBITOR) [Suspect]
     Dosage: PLACEBO TREATMENT
     Route: 048
     Dates: start: 20090812, end: 20110404
  2. SORAFENIB (RAF KINASE INHIBITOR) [Suspect]
     Dosage: 1 YEAR 400 MG, QD SORAFENIB
     Route: 048
     Dates: start: 20080812, end: 20090811

REACTIONS (1)
  - GASTROINTESTINAL STROMAL TUMOUR [None]
